FAERS Safety Report 9011764 (Version 1)
Quarter: 2013Q1

REPORT INFORMATION
  Report Type: Spontaneous
  Country: US (occurrence: US)
  Receive Date: 20130113
  Receipt Date: 20130113
  Transmission Date: 20140127
  Serious: Yes (Other)
  Sender: FDA-Public Use
  Company Number: US-009507513-0907USA03808

PATIENT
  Age: 3 Year
  Sex: Female
  Weight: 14.52 kg

DRUGS (2)
  1. SINGULAIR [Suspect]
     Indication: SEASONAL ALLERGY
     Dosage: 4 MG, QD
     Route: 048
     Dates: start: 20060701, end: 20080701
  2. SINGULAIR [Suspect]
     Indication: ASTHMA

REACTIONS (4)
  - Abnormal behaviour [Unknown]
  - Belligerence [Unknown]
  - Personality change [Unknown]
  - Drug ineffective [Unknown]
